FAERS Safety Report 4296135-7 (Version None)
Quarter: 2004Q1

REPORT INFORMATION
  Report Type: 
  Country: None (occurrence: None)
  Receive Date: 20040217
  Receipt Date: 20030825
  Transmission Date: 20041129
  Serious: No
  Sender: FDA-Public Use
  Company Number: US-GLAXOSMITHKLINE-A0423423A

PATIENT
  Age: 40 Year
  Sex: Male

DRUGS (2)
  1. LAMICTAL [Suspect]
     Indication: BIPOLAR DISORDER
     Dosage: 125MG TWICE PER DAY
     Route: 048
     Dates: end: 20030824
  2. WELLBUTRIN SR [Concomitant]

REACTIONS (1)
  - RASH [None]
